FAERS Safety Report 9443480 (Version 1)
Quarter: 2013Q3

REPORT INFORMATION
  Report Type: Spontaneous
  Country: ES (occurrence: ES)
  Receive Date: 20130806
  Receipt Date: 20130806
  Transmission Date: 20140515
  Serious: Yes (Other)
  Sender: FDA-Public Use
  Company Number: PHHY2011ES87819

PATIENT
  Age: 23 Year
  Sex: Female

DRUGS (4)
  1. PARACETAMOL [Suspect]
  2. AMBROXOL [Concomitant]
  3. BENZOCAINE [Concomitant]
  4. CHLORHEXIDINE [Concomitant]

REACTIONS (3)
  - Liver injury [Recovered/Resolved]
  - Rash [Recovered/Resolved]
  - Pyrexia [Recovered/Resolved]
